FAERS Safety Report 9764484 (Version 3)
Quarter: 2016Q1

REPORT INFORMATION
  Report Type: Report from Study
  Country: BR (occurrence: BR)
  Receive Date: 20131217
  Receipt Date: 20160218
  Transmission Date: 20160526
  Serious: Yes (Hospitalization, Other)
  Sender: FDA-Public Use
  Company Number: BR-ROCHE-1318561

PATIENT
  Sex: Female
  Weight: 68 kg

DRUGS (9)
  1. ACTEMRA [Suspect]
     Active Substance: TOCILIZUMAB
     Indication: RHEUMATOID ARTHRITIS
     Dosage: LATEST INFUSION DATE: 04/DEC/2013.?MOST RECENT DOSE OF TOCILIZUMAB: 03/FEB/2016
     Route: 065
     Dates: start: 20100521
  2. ACON [Concomitant]
  3. FAMOTIDINE. [Concomitant]
     Active Substance: FAMOTIDINE
  4. CRESTOR [Concomitant]
     Active Substance: ROSUVASTATIN CALCIUM
  5. ACETAMINOPHEN. [Concomitant]
     Active Substance: ACETAMINOPHEN
  6. FOLIC ACID. [Concomitant]
     Active Substance: FOLIC ACID
  7. CALCIUM CARBONATE. [Concomitant]
     Active Substance: CALCIUM CARBONATE
  8. AAS [Concomitant]
     Active Substance: ASPIRIN
  9. BETOPTIC S [Concomitant]
     Active Substance: BETAXOLOL HYDROCHLORIDE

REACTIONS (5)
  - Weight increased [Unknown]
  - Vision blurred [Not Recovered/Not Resolved]
  - Drug dose omission [Unknown]
  - Hypertension [Not Recovered/Not Resolved]
  - Uterine prolapse [Recovered/Resolved]
